FAERS Safety Report 7352769-4 (Version None)
Quarter: 2011Q1

REPORT INFORMATION
  Report Type: 
  Country: None (occurrence: None)
  Receive Date: 20110315
  Receipt Date: 20110301
  Transmission Date: 20110831
  Serious: Yes (Hospitalization)
  Sender: FDA-Public Use
  Company Number: AR-ROCHE-666872

PATIENT
  Sex: Female
  Weight: 45.5 kg

DRUGS (10)
  1. LEVOTHYROXINE [Concomitant]
     Indication: HYPOTHYROIDISM
     Route: 048
     Dates: start: 20060101
  2. STRONTIUM RANELATE [Concomitant]
     Indication: OSTEOPENIA
     Route: 048
     Dates: start: 20090108
  3. METOCLOPRAMIDE HCL [Concomitant]
     Indication: NAUSEA
     Route: 048
     Dates: start: 20090427
  4. RIBAVIRIN [Suspect]
     Indication: HEPATITIS C
     Route: 048
     Dates: start: 20090427, end: 20091028
  5. OMEPRAZOLE [Concomitant]
     Route: 048
     Dates: start: 20090904
  6. PEGINTERFERON ALFA-2A [Suspect]
     Indication: HEPATITIS C
     Dosage: FORM: SOLUTION FOR INJECTION, DOSE:180 UG/ML DAILY
     Route: 058
     Dates: start: 20090427, end: 20091026
  7. BI 201335 [Suspect]
     Indication: HEPATITIS C
     Dosage: FORM:KAW
     Route: 048
     Dates: start: 20090427, end: 20091012
  8. RAQUIFEROL [Concomitant]
     Indication: OSTEOPENIA
     Route: 048
     Dates: start: 20060101
  9. CLOBETASOL PROPIONATE [Concomitant]
     Route: 061
     Dates: start: 20090818
  10. ZOLPIDEM [Concomitant]
     Indication: INSOMNIA
     Route: 048
     Dates: start: 20090603

REACTIONS (1)
  - FEBRILE NEUTROPENIA [None]
